FAERS Safety Report 8574162-9 (Version None)
Quarter: 2012Q3

REPORT INFORMATION
  Report Type: 
  Country: None (occurrence: None)
  Receive Date: 20120806
  Receipt Date: 20110729
  Transmission Date: 20120928
  Serious: Yes (Death, Other)
  Sender: FDA-Public Use
  Company Number: DE-CELGENEUS-062-21880-12060208

PATIENT
  Sex: Male
  Weight: 65 kg

DRUGS (9)
  1. REVLIMID [Suspect]
     Route: 048
     Dates: start: 20110516, end: 20110605
  2. REVLIMID [Suspect]
     Indication: MULTIPLE MYELOMA
     Dosage: 25 MILLIGRAM
     Route: 048
     Dates: start: 20110321
  3. DEXAMETHASONE [Concomitant]
     Dosage: 5.7143 MILLIGRAM
     Route: 065
     Dates: start: 20110101, end: 20110605
  4. COTRIMOXAZOLE FORTE [Concomitant]
     Indication: INFECTION PROPHYLAXIS
     Route: 065
  5. HEPARIN [Concomitant]
     Route: 065
     Dates: start: 20110516
  6. HEPARIN [Concomitant]
     Route: 065
     Dates: start: 20110418
  7. DEXAMETHASONE [Concomitant]
     Indication: MULTIPLE MYELOMA
     Route: 065
     Dates: start: 20110321
  8. ZOLEDRONIC ACID [Concomitant]
     Route: 065
     Dates: start: 20110316, end: 20110608
  9. HEPARIN [Concomitant]
     Indication: ANTICOAGULANT THERAPY
     Route: 065

REACTIONS (8)
  - MULTIPLE MYELOMA [None]
  - VERTEBRAL COLUMN MASS [None]
  - OSTEONECROSIS OF JAW [None]
  - MONOPARESIS [None]
  - NEURALGIA [None]
  - BLOOD CREATININE INCREASED [None]
  - TOOTH ABSCESS [None]
  - CONSTIPATION [None]
